FAERS Safety Report 7112843-4 (Version None)
Quarter: 2010Q4

REPORT INFORMATION
  Report Type: 
  Country: None (occurrence: None)
  Receive Date: 20101119
  Receipt Date: 20100921
  Transmission Date: 20110411
  Serious: No
  Sender: FDA-Public Use
  Company Number: US-BRISTOL-MYERS SQUIBB COMPANY-15297088

PATIENT
  Age: 74 Year
  Sex: Female

DRUGS (2)
  1. AVAPRO [Suspect]
     Dates: start: 20100101
  2. AVALIDE [Suspect]
     Dates: start: 20100614

REACTIONS (1)
  - DYSPEPSIA [None]
